FAERS Safety Report 7296570-9 (Version None)
Quarter: 2011Q1

REPORT INFORMATION
  Report Type: 
  Country: None (occurrence: None)
  Receive Date: 20110216
  Receipt Date: 20110207
  Transmission Date: 20110831
  Serious: Yes (Other)
  Sender: FDA-Public Use
  Company Number: PHHY2010US78040

PATIENT
  Sex: Female
  Weight: 52.55 kg

DRUGS (8)
  1. PRILOSEC [Concomitant]
  2. ZONEGRAN [Concomitant]
  3. VITAMIN B COMPLEX [Concomitant]
  4. PREDNISONE TAB [Concomitant]
  5. TRILEPTAL [Concomitant]
  6. EXJADE [Suspect]
     Indication: SICKLE CELL ANAEMIA
     Dosage: 1000 MG, DAILY
     Route: 048
     Dates: start: 20080201
  7. KEPPRA [Concomitant]
  8. ASCORBIC ACID [Concomitant]

REACTIONS (5)
  - MUSCULOSKELETAL DISCOMFORT [None]
  - NAUSEA [None]
  - ABDOMINAL PAIN UPPER [None]
  - HEPATIC CYST [None]
  - HAEMATOCHEZIA [None]
